FAERS Safety Report 5750877-2 (Version None)
Quarter: 2008Q2

REPORT INFORMATION
  Report Type: 
  Country: None (occurrence: None)
  Receive Date: 20080528
  Receipt Date: 20080516
  Transmission Date: 20081010
  Serious: Yes (Death)
  Sender: FDA-Public Use
  Company Number: US-KINGPHARMUSA00001-K200800427

PATIENT

DRUGS (3)
  1. AVINZA [Suspect]
     Indication: PAIN
     Dosage: 120 MG, QD
     Dates: start: 20080409
  2. LYRICA [Concomitant]
     Dosage: 25 MG, QD
  3. LORTAB [Concomitant]
     Dosage: 10 MG, TID
     Route: 065
     Dates: end: 20080408

REACTIONS (1)
  - DEATH [None]
